FAERS Safety Report 16961630 (Version 1)
Quarter: 2019Q4

REPORT INFORMATION
  Report Type: Spontaneous
  Country: US (occurrence: US)
  Receive Date: 20190906
  Receipt Date: 20190906
  Transmission Date: 20200122
  Serious: Yes (Hospitalization)
  Sender: FDA-Public Use
  Company Number: None

PATIENT
  Age: 60 Year
  Sex: Female

DRUGS (15)
  1. HUMIRA [Suspect]
     Active Substance: ADALIMUMAB
     Indication: RHEUMATOID ARTHRITIS
     Dosage: ?          OTHER FREQUENCY:ONCE EVERY 7 DAYS;?
     Route: 058
     Dates: start: 20180908
  2. PANTOPRAZOLE [Concomitant]
     Active Substance: PANTOPRAZOLE
  3. HYDROCO/APAP [Concomitant]
     Active Substance: ACETAMINOPHEN\HYDROCODONE
  4. CREON [Concomitant]
     Active Substance: PANCRELIPASE AMYLASE\PANCRELIPASE LIPASE\PANCRELIPASE PROTEASE
  5. HYDROXYCHLOR [Concomitant]
     Active Substance: HYDROXYCHLOROQUINE
  6. MUPIROCIN. [Concomitant]
     Active Substance: MUPIROCIN
  7. CEPHALEXIN. [Concomitant]
     Active Substance: CEPHALEXIN
  8. FOLIC ACID. [Concomitant]
     Active Substance: FOLIC ACID
  9. ONDANSETRON [Concomitant]
     Active Substance: ONDANSETRON
  10. HYDROXYCHLOR [Concomitant]
     Active Substance: HYDROXYCHLOROQUINE
  11. PREGABALIN. [Concomitant]
     Active Substance: PREGABALIN
  12. FENTANYL. [Suspect]
     Active Substance: FENTANYL
  13. LYRICA [Concomitant]
     Active Substance: PREGABALIN
  14. DICLOFENAC [Concomitant]
     Active Substance: DICLOFENAC
  15. PREDNISONE. [Concomitant]
     Active Substance: PREDNISONE

REACTIONS (1)
  - Spinal operation [None]

NARRATIVE: CASE EVENT DATE: 20190810
